FAERS Safety Report 15835442 (Version 3)
Quarter: 2019Q1

REPORT INFORMATION
  Report Type: Report from Study
  Country: US (occurrence: US)
  Receive Date: 20190117
  Receipt Date: 20190222
  Transmission Date: 20190417
  Serious: Yes (Other)
  Sender: FDA-Public Use
  Company Number: US-BRISTOL-MYERS SQUIBB COMPANY-BMS-2019-003415

PATIENT
  Age: 69 Year
  Sex: Female
  Weight: 77.1 kg

DRUGS (3)
  1. EPACADOSTAT [Suspect]
     Active Substance: EPACADOSTAT
     Indication: METASTATIC MALIGNANT MELANOMA
     Dosage: 50 MG, Q12H
     Route: 048
     Dates: start: 20180320
  2. NIVOLUMAB [Suspect]
     Active Substance: NIVOLUMAB
     Indication: METASTATIC MALIGNANT MELANOMA
     Dosage: 240 MG, Q2WK
     Route: 042
     Dates: start: 20180320, end: 20190109
  3. IPILIMUMAB [Suspect]
     Active Substance: IPILIMUMAB
     Indication: METASTATIC MALIGNANT MELANOMA
     Dosage: 75 MG, Q6WK
     Route: 042
     Dates: start: 20180320

REACTIONS (1)
  - Polyarthritis [Recovered/Resolved]

NARRATIVE: CASE EVENT DATE: 20190109
